FAERS Safety Report 4748564-2 (Version None)
Quarter: 2005Q3

REPORT INFORMATION
  Report Type: 
  Country: None (occurrence: None)
  Receive Date: 20050818
  Receipt Date: 20050818
  Transmission Date: 20060218
  Serious: Yes (Other)
  Sender: FDA-Public Use
  Company Number: None

PATIENT
  Age: 75 Year
  Sex: Male
  Weight: 102.0593 kg

DRUGS (3)
  1. TERAZOSIN 10MG CAPSULES [Suspect]
     Indication: HYPERTENSION
     Dosage: TAKE 1 CAPSULE AT BEDTIME
     Dates: start: 20050801, end: 20050813
  2. PROSCAR [Concomitant]
  3. LAMISIL [Concomitant]

REACTIONS (4)
  - BLOOD PRESSURE INCREASED [None]
  - CHEST PAIN [None]
  - NECK PAIN [None]
  - PHARMACEUTICAL PRODUCT COMPLAINT [None]
